FAERS Safety Report 5801914-8 (Version None)
Quarter: 2008Q3

REPORT INFORMATION
  Report Type: 
  Country: None (occurrence: None)
  Receive Date: 20080707
  Receipt Date: 20080623
  Transmission Date: 20090109
  Serious: Yes (Disabling, Other)
  Sender: FDA-Public Use
  Company Number: GB-ELI_LILLY_AND_COMPANY-GB200806006220

PATIENT
  Sex: Male
  Weight: 43.5 kg

DRUGS (3)
  1. STRATTERA [Suspect]
     Indication: ATTENTION DEFICIT/HYPERACTIVITY DISORDER
     Dosage: 40 MG, UNKNOWN
     Route: 048
  2. STRATTERA [Suspect]
     Dosage: UNK, UNKNOWN
     Route: 065
     Dates: end: 20070903
  3. EQUASYM [Concomitant]
     Indication: ABNORMAL BEHAVIOUR
     Dosage: 10 MG, UNKNOWN
     Route: 048
     Dates: start: 20070904

REACTIONS (4)
  - AGITATION [None]
  - DEPRESSION [None]
  - OBSESSIVE-COMPULSIVE DISORDER [None]
  - SOMNOLENCE [None]
